FAERS Safety Report 7328188-3 (Version None)
Quarter: 2011Q1

REPORT INFORMATION
  Report Type: 
  Country: None (occurrence: None)
  Receive Date: 20110218
  Receipt Date: 20110207
  Transmission Date: 20110831
  Serious: Yes (Other)
  Sender: FDA-Public Use
  Company Number: JP-2011-10222

PATIENT
  Age: 70 Year
  Sex: Male

DRUGS (3)
  1. PLETAAL(CILOSTAZOL) TABLET, 100MG MILLIGRAM(S) [Suspect]
     Dosage: ORAL
     Route: 048
  2. ASPIRIN [Concomitant]
  3. PLAVIX [Concomitant]

REACTIONS (3)
  - RENAL IMPAIRMENT [None]
  - THROMBOSIS [None]
  - EOSINOPHIL COUNT INCREASED [None]
